FAERS Safety Report 25938148 (Version 1)
Quarter: 2025Q4

REPORT INFORMATION
  Report Type: Spontaneous
  Country: CN (occurrence: CN)
  Receive Date: 20251018
  Receipt Date: 20251018
  Transmission Date: 20260118
  Serious: Yes (Hospitalization, Other)
  Sender: ALKEM
  Company Number: CN-ALKEM LABORATORIES LIMITED-CN-ALKEM-2025-11096

PATIENT
  Age: 60 Year
  Sex: Male

DRUGS (4)
  1. TRIAMCINOLONE ACETONIDE [Suspect]
     Active Substance: TRIAMCINOLONE ACETONIDE
     Indication: Endocrine ophthalmopathy
     Dosage: 40 MILLIGRAM, ONCE IN 2 WEEKS (5 PERIBULBAR INJECTIONS)
     Route: 065
  2. METHYLPREDNISOLONE [Suspect]
     Active Substance: METHYLPREDNISOLONE
     Indication: Endocrine ophthalmopathy
     Dosage: UNK (10 WEEKLY INFUSIONS (3 CONSECUTIVE DAYS OF INFUSIONS OF 0.5 G DURING THE FIRST WEEK, 3 WEEKLY I
     Route: 042
  3. METHIMAZOLE [Concomitant]
     Active Substance: METHIMAZOLE
     Indication: Hyperthyroidism
     Dosage: 10 MILLIGRAM, BID
     Route: 048
  4. METHIMAZOLE [Concomitant]
     Active Substance: METHIMAZOLE
     Dosage: 10 MILLIGRAM, OD
     Route: 048

REACTIONS (1)
  - Central serous chorioretinopathy [Recovered/Resolved]
